FAERS Safety Report 5165407-6 (Version None)
Quarter: 2006Q4

REPORT INFORMATION
  Report Type: 
  Country: None (occurrence: None)
  Receive Date: 20061127
  Receipt Date: 20061116
  Transmission Date: 20070319
  Serious: Yes (Hospitalization)
  Sender: FDA-Public Use
  Company Number: 2006AP000986

PATIENT
  Age: 74 Year
  Sex: Male

DRUGS (2)
  1. TICLOPIDINE HCL [Suspect]
     Indication: CORONARY ANGIOPLASTY
     Dosage: 250 MG; PO; BID; PO
     Route: 048
     Dates: start: 20040401, end: 20040401
  2. ASPIRIN [Concomitant]

REACTIONS (9)
  - BRONCHIAL DISORDER [None]
  - BRONCHIAL HAEMORRHAGE [None]
  - CARDIAC ARREST [None]
  - CHEST X-RAY ABNORMAL [None]
  - HAEMOGLOBIN DECREASED [None]
  - HAEMOPTYSIS [None]
  - PO2 DECREASED [None]
  - PYREXIA [None]
  - THROMBOSIS [None]
